FAERS Safety Report 15900125 (Version 3)
Quarter: 2019Q2

REPORT INFORMATION
  Report Type: Spontaneous
  Country: JP (occurrence: JP)
  Receive Date: 20190201
  Receipt Date: 20190404
  Transmission Date: 20190711
  Serious: Yes (Other)
  Sender: FDA-Public Use
  Company Number: JP-PFIZER INC-2018528490

PATIENT
  Age: 60 Year
  Sex: Male
  Weight: 68 kg

DRUGS (7)
  1. AFLIBERCEPT BETA [Concomitant]
     Indication: RECTAL CANCER METASTATIC
     Dosage: 275 MG/BODY, CYCLIC (TOTAL OF 8 CYCLES)
     Dates: start: 20180913, end: 20190110
  2. FLUOROURACIL. [Concomitant]
     Active Substance: FLUOROURACIL
     Dosage: 750 MG/BODY (405.8 MG/M2)
     Route: 041
     Dates: start: 20180913
  3. LEVOFOLINATE CALCIUM [Concomitant]
     Active Substance: LEVOLEUCOVORIN CALCIUM
     Indication: RECTAL CANCER METASTATIC
     Dosage: 350 MG/BODY (189.4 MG/M2)
     Route: 041
  4. LEVOFOLINATE CALCIUM [Concomitant]
     Active Substance: LEVOLEUCOVORIN CALCIUM
     Dosage: 375 MG/BODY (202.9 MG/M2)
     Route: 041
     Dates: start: 20180913
  5. CAMPTO [Suspect]
     Active Substance: IRINOTECAN
     Indication: RECTAL CANCER METASTATIC
     Dosage: 280 MG, 1X/DAY (/BODY (151.5 MG/M2))
     Route: 041
     Dates: start: 20180913, end: 20190110
  6. ELPLAT [Suspect]
     Active Substance: OXALIPLATIN
     Indication: RECTAL CANCER METASTATIC
     Dosage: 150 MG, 1X/DAY (/BODY 81.2 MG/M2)
     Route: 041
     Dates: start: 20171026, end: 20180830
  7. FLUOROURACIL. [Concomitant]
     Active Substance: FLUOROURACIL
     Indication: RECTAL CANCER METASTATIC
     Dosage: 700 MG/BODY (378.8 MG/M2)
     Route: 041

REACTIONS (5)
  - Dysphonia [Unknown]
  - Gastric ulcer [Recovering/Resolving]
  - Neutrophil count decreased [Recovered/Resolved]
  - White blood cell count decreased [Recovering/Resolving]
  - Cough [Recovering/Resolving]

NARRATIVE: CASE EVENT DATE: 20180522
